FAERS Safety Report 6949841-7 (Version None)
Quarter: 2010Q3

REPORT INFORMATION
  Report Type: 
  Country: None (occurrence: None)
  Receive Date: 20100828
  Receipt Date: 20100114
  Transmission Date: 20110219
  Serious: No
  Sender: FDA-Public Use
  Company Number: US-ABBOTT-10P-163-0620051-00

PATIENT
  Sex: Male
  Weight: 116.22 kg

DRUGS (6)
  1. NIASPAN [Suspect]
     Indication: HIGH DENSITY LIPOPROTEIN DECREASED
     Dates: start: 20060101, end: 20060101
  2. NIASPAN [Suspect]
     Dates: start: 20060101, end: 20060101
  3. NIASPAN [Suspect]
     Dates: start: 20060101, end: 20060101
  4. NIASPAN [Suspect]
     Dates: start: 20060101, end: 20100101
  5. NIASPAN [Suspect]
     Dates: start: 20100101
  6. UNKNOWN CARDIAC MEDICATIONS [Concomitant]
     Indication: CARDIAC DISORDER

REACTIONS (1)
  - FLUSHING [None]
